FAERS Safety Report 20717757 (Version 1)
Quarter: 2022Q2

REPORT INFORMATION
  Report Type: Spontaneous
  Country: CN (occurrence: CN)
  Receive Date: 20220417
  Receipt Date: 20220417
  Transmission Date: 20220720
  Serious: Yes (Hospitalization, Other)
  Sender: FDA-Public Use
  Company Number: CN-BAXTER-2022BAX008266

PATIENT
  Age: 74 Year
  Sex: Female
  Weight: 54.1 kg

DRUGS (8)
  1. CYCLOPHOSPHAMIDE [Suspect]
     Active Substance: CYCLOPHOSPHAMIDE
     Indication: Glomerulonephritis membranous
     Dosage: DOSE RE-INTRODUCED, CYCLOPHOSPHAMIDE FOR INJECTION (0.6 G) + SODIUM CHLORIDE (NS) (500 ML)
     Route: 041
     Dates: start: 20211112, end: 20211112
  2. CYCLOPHOSPHAMIDE [Suspect]
     Active Substance: CYCLOPHOSPHAMIDE
     Dosage: CYCLOPHOSPHAMIDE FOR INJECTION (0.4 G) + SODIUM CHLORIDE (NS) (500 ML)
     Route: 041
     Dates: start: 20211111
  3. CYCLOPHOSPHAMIDE [Suspect]
     Active Substance: CYCLOPHOSPHAMIDE
     Dosage: CYCLOPHOSPHAMIDE FOR INJECTION (0.8 G) + SODIUM CHLORIDE (NS) (1 L)
     Route: 041
     Dates: start: 20211221
  4. CYCLOPHOSPHAMIDE [Suspect]
     Active Substance: CYCLOPHOSPHAMIDE
     Dosage: CYCLOPHOSPHAMIDE FOR INJECTION (0.8 G) + SODIUM CHLORIDE (NS) (1 L), DOSE RE-INTRODUCED
     Route: 041
     Dates: start: 20220125
  5. SODIUM CHLORIDE [Suspect]
     Active Substance: SODIUM CHLORIDE
     Indication: Medication dilution
     Dosage: CYCLOPHOSPHAMIDE FOR INJECTION (0.6 G) + SODIUM CHLORIDE (NS) (500 ML)
     Route: 041
     Dates: start: 20211112, end: 20211112
  6. SODIUM CHLORIDE [Suspect]
     Active Substance: SODIUM CHLORIDE
     Dosage: CYCLOPHOSPHAMIDE FOR INJECTION (0.4 G) + SODIUM CHLORIDE (NS) (500 ML)
     Route: 041
     Dates: start: 20211111
  7. SODIUM CHLORIDE [Suspect]
     Active Substance: SODIUM CHLORIDE
     Dosage: CYCLOPHOSPHAMIDE FOR INJECTION (0.8 G) + SODIUM CHLORIDE (NS) (1 L)
     Route: 041
     Dates: start: 20211221
  8. SODIUM CHLORIDE [Suspect]
     Active Substance: SODIUM CHLORIDE
     Dosage: DOSE RE-INTRODUCED, CYCLOPHOSPHAMIDE (0.8 G) + SODIUM CHLORIDE (NS) (1 L), DOSE RE-INTRODUCED
     Route: 041
     Dates: start: 20220125

REACTIONS (1)
  - Blood immunoglobulin G decreased [Recovering/Resolving]

NARRATIVE: CASE EVENT DATE: 20211216
